FAERS Safety Report 22627936 (Version 1)
Quarter: 2023Q2

REPORT INFORMATION
  Report Type: Spontaneous
  Country: BR (occurrence: BR)
  Receive Date: 20230622
  Receipt Date: 20230622
  Transmission Date: 20230722
  Serious: Yes (Hospitalization, Other)
  Sender: FDA-Public Use
  Company Number: BR-MYLANLABS-2023M1063242

PATIENT
  Sex: Female

DRUGS (5)
  1. ALPRAZOLAM [Suspect]
     Active Substance: ALPRAZOLAM
     Indication: Anxiety
     Dosage: 2 MILLIGRAM, TID
     Route: 048
  2. ALPRAZOLAM [Suspect]
     Active Substance: ALPRAZOLAM
     Dosage: 2 MILLIGRAM, BID (2MG TWICE A DAY); START DATE: 2023
     Route: 048
  3. Alenia [Concomitant]
     Indication: Asthma
     Dosage: UNK
     Route: 065
  4. ALBUTEROL [Concomitant]
     Active Substance: ALBUTEROL
     Indication: Asthma
     Dosage: UNK, PRN
     Route: 065
  5. ZOLPIDEM TARTRATE [Concomitant]
     Active Substance: ZOLPIDEM TARTRATE
     Indication: Sleep disorder
     Dosage: UNK, QD
     Route: 065

REACTIONS (15)
  - Chikungunya virus infection [Unknown]
  - Pulmonary embolism [Not Recovered/Not Resolved]
  - Haematological infection [Not Recovered/Not Resolved]
  - Dengue haemorrhagic fever [Recovered/Resolved with Sequelae]
  - COVID-19 [Recovered/Resolved with Sequelae]
  - Memory impairment [Not Recovered/Not Resolved]
  - Pain [Not Recovered/Not Resolved]
  - Anaemia [Not Recovered/Not Resolved]
  - Dengue fever [Unknown]
  - Nervousness [Not Recovered/Not Resolved]
  - Anxiety [Not Recovered/Not Resolved]
  - Withdrawal syndrome [Recovered/Resolved]
  - Product availability issue [Unknown]
  - Product use issue [Unknown]
  - Overdose [Unknown]

NARRATIVE: CASE EVENT DATE: 20200101
